FAERS Safety Report 6970030-4 (Version None)
Quarter: 2010Q3

REPORT INFORMATION
  Report Type: 
  Country: None (occurrence: None)
  Receive Date: 20100908
  Receipt Date: 20100826
  Transmission Date: 20110219
  Serious: Yes (Hospitalization)
  Sender: FDA-Public Use
  Company Number: US-GENZYME-THYM-1001560

PATIENT
  Sex: Male
  Weight: 103 kg

DRUGS (31)
  1. THYMOGLOBULIN [Suspect]
     Indication: PROPHYLAXIS AGAINST TRANSPLANT REJECTION
     Dosage: 125 MG, UNK
     Route: 042
     Dates: start: 20100610, end: 20100610
  2. THYMOGLOBULIN [Suspect]
     Dosage: 125 MG, UNK
     Route: 042
     Dates: start: 20100612, end: 20100612
  3. THYMOGLOBULIN [Suspect]
     Dosage: 125 MG, UNK
     Route: 042
     Dates: start: 20100614, end: 20100614
  4. THYMOGLOBULIN [Suspect]
     Dosage: 125 MG, UNK
     Route: 042
     Dates: start: 20100616, end: 20100616
  5. ACETAMINOPHEN [Concomitant]
     Indication: PYREXIA
     Dosage: 625 MG, QID
     Dates: start: 20100616, end: 20100623
  6. ACETAMINOPHEN [Concomitant]
     Indication: PAIN
  7. AMLODIPINE BESYLATE [Concomitant]
     Indication: HYPERTENSION
     Dosage: 5 MG, QD
     Dates: start: 20100616, end: 20100623
  8. CYCLOBENZAPRINE HCL [Concomitant]
     Indication: MUSCLE SPASMS
     Dosage: 10 MG, QDX3
     Dates: start: 20100616, end: 20100623
  9. DIPHENHYDRAMINE HYDROCHLORIDE [Concomitant]
     Indication: PREMEDICATION
     Dosage: 50 MG, ONCE
     Dates: start: 20100616, end: 20100616
  10. HYDROCHLOROTHIAZIDE [Concomitant]
     Indication: OEDEMA
     Dosage: 25 MG, ONCE
     Dates: start: 20100617, end: 20100617
  11. INSULIN [Concomitant]
     Indication: HYPERGLYCAEMIA
     Dosage: 1 U, UNK
     Route: 058
     Dates: start: 20100615, end: 20100617
  12. LEVOTHYROXINE SODIUM [Concomitant]
     Indication: HYPOTHYROIDISM
     Dosage: 25 MCG, QD
     Dates: start: 20100616, end: 20100623
  13. MAGNESIUM PHOSPHATE [Concomitant]
     Indication: MAGNESIUM DEFICIENCY
     Dosage: 64 MG, TID
     Dates: start: 20100616, end: 20100623
  14. MYCOPHENOLATE MOFETIL [Concomitant]
     Indication: IMMUNOSUPPRESSION
     Dosage: 1000 MG, BID
     Dates: start: 20100611, end: 20100618
  15. OXYCODONE [Concomitant]
     Indication: PAIN
     Dosage: 2.5 MG, Q4HR
     Dates: start: 20100616, end: 20100623
  16. POTASSIUM CHLORIDE [Concomitant]
     Indication: MINERAL SUPPLEMENTATION
     Dosage: 40 MEQ, TID
     Dates: start: 20100614, end: 20100614
  17. POTASSIUM CHLORIDE [Concomitant]
     Dosage: 40 MEQ, QD
     Dates: start: 20100614, end: 20100617
  18. PREDNISONE [Concomitant]
     Indication: IMMUNOSUPPRESSION
     Dosage: 20 MG, QD
     Dates: start: 20100616, end: 20100623
  19. BACTRIM [Concomitant]
     Indication: ANTIBIOTIC THERAPY
     Dosage: 1 DF, UNK
     Route: 048
     Dates: start: 20100614, end: 20100623
  20. TACROLIMUS [Concomitant]
     Indication: IMMUNOSUPPRESSION
     Dosage: 3 MG, BID
     Dates: start: 20100616, end: 20100621
  21. VALGANCICLOVIR HCL [Concomitant]
     Indication: CYTOMEGALOVIRUS INFECTION
     Dosage: 900 MG, QD
     Dates: start: 20100611, end: 20100623
  22. ALPRAZOLAM [Concomitant]
     Indication: ANXIETY
     Dosage: .25 MG, QID
     Dates: start: 20100614, end: 20100623
  23. CITALOPRAM HYDROCHLORIDE [Concomitant]
     Indication: DEPRESSION
     Dosage: 10 MG, QD
     Dates: start: 20100610, end: 20100623
  24. CLONIDINE HYDROCHLORIDE [Concomitant]
     Indication: BLOOD PRESSURE SYSTOLIC
     Dosage: .1 MG, Q1HR
     Dates: start: 20100610, end: 20100623
  25. HYDROMORPHONE HYDROCHLORIDE [Concomitant]
     Indication: PAIN
     Dosage: 1 MG, QID
     Dates: start: 20100614, end: 20100617
  26. HYDRALAZINE HYDROCHLORIDE [Concomitant]
     Indication: HYPERTENSION
     Dosage: 10 MG, QID
     Dates: start: 20100614, end: 20100623
  27. LANSOPRAZOLE [Concomitant]
     Indication: GASTROOESOPHAGEAL REFLUX DISEASE
     Dosage: 30 MG, QD
     Dates: start: 20100610, end: 20100623
  28. MAGNESIUM SULFATE [Concomitant]
     Indication: MINERAL SUPPLEMENTATION
     Dosage: 2 G, QD
     Dates: start: 20100617, end: 20100617
  29. METOPROLOL TARTRATE [Concomitant]
     Indication: HYPERTENSION
     Dosage: 25 MG, BID
     Dates: start: 20100611, end: 20100618
  30. ONDANSETRON HYDROCHLORIDE [Concomitant]
     Indication: NAUSEA
     Dosage: 4 MG, QID
     Dates: start: 20100614, end: 20100617
  31. ONDANSETRON HYDROCHLORIDE [Concomitant]
     Indication: VOMITING

REACTIONS (3)
  - OXYGEN SATURATION DECREASED [None]
  - PYREXIA [None]
  - TACHYCARDIA [None]
